FAERS Safety Report 7369340-0 (Version None)
Quarter: 2011Q1

REPORT INFORMATION
  Report Type: 
  Country: None (occurrence: None)
  Receive Date: 20110323
  Receipt Date: 20110322
  Transmission Date: 20110831
  Serious: Yes (Life-Threatening)
  Sender: FDA-Public Use
  Company Number: D0070489A

PATIENT
  Sex: Male
  Weight: 100 kg

DRUGS (2)
  1. VIANI 50-250 DISKUS [Suspect]
     Dosage: 300MCG SINGLE DOSE
     Route: 055
     Dates: start: 20110224, end: 20110224
  2. ASPIRIN [Concomitant]
     Dosage: 100MG PER DAY
     Route: 065

REACTIONS (6)
  - INCREASED VISCOSITY OF BRONCHIAL SECRETION [None]
  - COUGH [None]
  - THROAT IRRITATION [None]
  - DYSPNOEA [None]
  - PRODUCT QUALITY ISSUE [None]
  - ASTHMA [None]
